FAERS Safety Report 9921461 (Version 1)
Quarter: 2014Q1

REPORT INFORMATION
  Report Type: Spontaneous
  Country: US (occurrence: None)
  Receive Date: 20140221
  Receipt Date: 20140221
  Transmission Date: 20141002
  Serious: Yes (Other)
  Sender: FDA-Public Use
  Company Number: None

PATIENT
  Age: 60 Year
  Sex: Female
  Weight: 60.8 kg

DRUGS (6)
  1. VANDETANIB [Suspect]
     Indication: GLIOBLASTOMA
     Dates: start: 20090609, end: 20090702
  2. SIROLIMUS [Suspect]
     Dates: start: 20090609, end: 20090702
  3. RANITIDINE [Concomitant]
  4. KEPPRA [Concomitant]
  5. LASIX [Concomitant]
  6. LEVOTHYROXINE [Concomitant]

REACTIONS (2)
  - Aspartate aminotransferase increased [None]
  - Toxicity to various agents [None]
